FAERS Safety Report 10477516 (Version 1)
Quarter: 2014Q3

REPORT INFORMATION
  Report Type: Spontaneous
  Country: DE (occurrence: DE)
  Receive Date: 20140926
  Receipt Date: 20140926
  Transmission Date: 20150326
  Serious: Yes (Congenital Anomaly)
  Sender: FDA-Public Use
  Company Number: DE-ROCHE-1463657

PATIENT
  Age: 1 Day
  Sex: Male

DRUGS (9)
  1. PREDNISOLON [Concomitant]
     Active Substance: PREDNISOLONE
     Indication: IMMUNODEFICIENCY
     Dosage: DOSE REDUCED TO 20MG/DAY
     Route: 064
     Dates: start: 20130317, end: 20131213
  2. FOLSAURE [Concomitant]
     Active Substance: FOLIC ACID
     Route: 064
     Dates: start: 20130513, end: 20130813
  3. PENICILLINS [Concomitant]
     Indication: IMMUNODEFICIENCY
     Route: 064
     Dates: start: 20130317, end: 20131213
  4. MYFORTIC [Suspect]
     Active Substance: MYCOPHENOLATE SODIUM
     Indication: IMMUNODEFICIENCY
     Route: 064
     Dates: start: 20130317, end: 20130502
  5. VIGANTOLETTEN [Concomitant]
     Active Substance: CHOLECALCIFEROL
     Indication: IMMUNODEFICIENCY
     Route: 064
     Dates: start: 20130317, end: 20130502
  6. PRIVIGEN [Concomitant]
     Active Substance: HUMAN IMMUNOGLOBULIN G
     Indication: IMMUNODEFICIENCY
     Route: 064
     Dates: start: 20130317, end: 20131213
  7. VALCYTE [Suspect]
     Active Substance: VALGANCICLOVIR HYDROCHLORIDE
     Indication: PRODUCT USED FOR UNKNOWN INDICATION
     Route: 064
     Dates: start: 20130317, end: 20130502
  8. KLACID (GERMANY) [Concomitant]
     Indication: LUNG DISORDER
     Route: 064
     Dates: start: 20131202, end: 20131209
  9. OMEPRAZOL [Concomitant]
     Active Substance: OMEPRAZOLE
     Route: 064
     Dates: start: 20130317, end: 20131213

REACTIONS (2)
  - Foetal exposure during pregnancy [Unknown]
  - Hypospadias [Not Recovered/Not Resolved]

NARRATIVE: CASE EVENT DATE: 20131213
